FAERS Safety Report 6210273-0 (Version None)
Quarter: 2009Q2

REPORT INFORMATION
  Report Type: 
  Country: None (occurrence: None)
  Receive Date: 20090601
  Receipt Date: 20090520
  Transmission Date: 20091009
  Serious: Yes (Life-Threatening, Hospitalization, Other)
  Sender: FDA-Public Use
  Company Number: CL-PFIZER INC-2009216254

PATIENT
  Age: 14 Year

DRUGS (7)
  1. DOXORUBICIN HCL [Suspect]
     Indication: FIBROMATOSIS
     Dosage: UNK
     Dates: start: 20080101
  2. EUTIROX [Concomitant]
     Dosage: UNK
  3. LYRICA [Concomitant]
     Dosage: UNK
     Dates: start: 20080101, end: 20090518
  4. VALPROIC ACID [Concomitant]
     Dosage: UNK
  5. CLONEX [Concomitant]
  6. VINCRISTINE [Concomitant]
     Dosage: UNK
     Dates: start: 20080101
  7. CYCLOPHOSPHAMIDE [Concomitant]
     Dosage: UNK
     Dates: start: 20080101

REACTIONS (9)
  - ARRHYTHMIA [None]
  - CARDIAC FAILURE [None]
  - CARDIOGENIC SHOCK [None]
  - EMBOLISM [None]
  - LEFT VENTRICULAR HYPERTROPHY [None]
  - NEUTROPENIA [None]
  - RASH [None]
  - SEPTIC SHOCK [None]
  - THROMBOPHLEBITIS [None]
